FAERS Safety Report 7260656-5 (Version None)
Quarter: 2011Q1

REPORT INFORMATION
  Report Type: 
  Country: None (occurrence: None)
  Receive Date: 20110130
  Receipt Date: 20101116
  Transmission Date: 20110831
  Serious: No
  Sender: FDA-Public Use
  Company Number: US-ABBOTT-10P-163-0687021-00

PATIENT
  Sex: Female
  Weight: 88.53 kg

DRUGS (3)
  1. PRE-NATAL VITAMIN WITH OB AND DHA [Concomitant]
     Indication: BREAST FEEDING
  2. HUMIRA [Suspect]
     Indication: CROHN'S DISEASE
     Dates: start: 20050101
  3. NUVIGIL [Concomitant]
     Indication: NARCOLEPSY

REACTIONS (4)
  - INFECTION [None]
  - HYPERTENSION [None]
  - INCISION SITE OEDEMA [None]
  - INCISION SITE ERYTHEMA [None]
